FAERS Safety Report 11947248 (Version 1)
Quarter: 2016Q1

REPORT INFORMATION
  Report Type: Spontaneous
  Country: US (occurrence: US)
  Receive Date: 20160125
  Receipt Date: 20160125
  Transmission Date: 20160526
  Serious: No
  Sender: FDA-Public Use
  Company Number: US-JNJFOC-20151202913

PATIENT
  Age: 77 Year
  Sex: Female
  Weight: 74.39 kg

DRUGS (3)
  1. WOMENS ROGAINE [Suspect]
     Active Substance: MINOXIDIL
     Indication: ALOPECIA
     Dosage: ON AND OFF FOR YEARS
     Route: 061
  2. VITAMINS NOS [Concomitant]
     Active Substance: VITAMINS
     Indication: HAIR GROWTH ABNORMAL
     Route: 065
  3. WOMENS ROGAINE [Suspect]
     Active Substance: MINOXIDIL
     Indication: ALOPECIA
     Dosage: ON AND OFF FOR YEARS
     Route: 061

REACTIONS (3)
  - Off label use [Unknown]
  - Inappropriate schedule of drug administration [Unknown]
  - Contraindication to medical treatment [Unknown]
